FAERS Safety Report 4401464-X (Version None)
Quarter: 2004Q3

REPORT INFORMATION
  Report Type: 
  Country: None (occurrence: None)
  Receive Date: 20040907
  Receipt Date: 20040517
  Transmission Date: 20050211
  Serious: No
  Sender: FDA-Public Use
  Company Number: US-BRISTOL-MYERS SQUIBB COMPANY-12589610

PATIENT
  Age: 88 Year
  Sex: Male
  Weight: 71 kg

DRUGS (4)
  1. COUMADIN [Suspect]
     Indication: CARDIAC MURMUR
     Route: 048
  2. DIGITEK [Concomitant]
  3. MONOPRIL [Concomitant]
  4. FUROSEMIDE [Concomitant]

REACTIONS (2)
  - DRUG LEVEL CHANGED [None]
  - PRURITUS [None]
